FAERS Safety Report 4692131-6 (Version None)
Quarter: 2005Q2

REPORT INFORMATION
  Report Type: 
  Country: None (occurrence: None)
  Receive Date: 20050614
  Receipt Date: 20050602
  Transmission Date: 20051028
  Serious: Yes (Hospitalization)
  Sender: FDA-Public Use
  Company Number: 2005040276

PATIENT
  Age: 64 Year
  Sex: Female
  Weight: 83.9154 kg

DRUGS (6)
  1. CELEBREX [Suspect]
     Indication: ARTHRITIS
     Dosage: 400 MG (200 MG 2 IN 1 D)ORAL
     Route: 048
     Dates: start: 20010101
  2. GLUCOTROL XL [Concomitant]
  3. NORVASC [Concomitant]
  4. ATENOLOL [Concomitant]
  5. BACLOFEN [Concomitant]
  6. TYLENOL [Concomitant]

REACTIONS (5)
  - DIFFICULTY IN WALKING [None]
  - FALL [None]
  - PATELLA FRACTURE [None]
  - POST PROCEDURAL COMPLICATION [None]
  - POSTOPERATIVE INFECTION [None]
